FAERS Safety Report 6343050-0 (Version None)
Quarter: 2009Q3

REPORT INFORMATION
  Report Type: 
  Country: None (occurrence: None)
  Receive Date: 20090908
  Receipt Date: 20090731
  Transmission Date: 20100115
  Serious: Yes (Hospitalization, Other)
  Sender: FDA-Public Use
  Company Number: GB-ROCHE-654100

PATIENT
  Age: 77 Year
  Sex: Male

DRUGS (1)
  1. XENICAL [Suspect]
     Dosage: INDICATION REPORTED AS BLOATING AND TIREDNESS
     Route: 065

REACTIONS (6)
  - ANAEMIA [None]
  - BLOOD GLUCOSE ABNORMAL [None]
  - BLOOD GLUCOSE INCREASED [None]
  - DEHYDRATION [None]
  - FATIGUE [None]
  - NASOPHARYNGITIS [None]
